FAERS Safety Report 15567952 (Version 2)
Quarter: 2018Q4

REPORT INFORMATION
  Report Type: Spontaneous
  Country: JP (occurrence: JP)
  Receive Date: 20181030
  Receipt Date: 20181126
  Transmission Date: 20190205
  Serious: Yes (Other)
  Sender: FDA-Public Use
  Company Number: JP-GE HEALTHCARE LIFE SCIENCES-2018CSU004299

PATIENT

DRUGS (3)
  1. OMNISCAN [Suspect]
     Active Substance: GADODIAMIDE
     Indication: HAEMANGIOMA
     Dosage: UNK UNK, SINGLE
     Route: 042
  2. OMNISCAN [Suspect]
     Active Substance: GADODIAMIDE
     Dosage: UNK, SINGLE
     Route: 042
  3. MAGNEVIST [Suspect]
     Active Substance: GADOPENTETATE DIMEGLUMINE
     Indication: HAEMANGIOMA
     Route: 042

REACTIONS (1)
  - Nuclear magnetic resonance imaging brain abnormal [Unknown]
